FAERS Safety Report 23683993 (Version 1)
Quarter: 2024Q1

REPORT INFORMATION
  Report Type: Spontaneous
  Country: DE (occurrence: DE)
  Receive Date: 20240328
  Receipt Date: 20240328
  Transmission Date: 20240410
  Serious: Yes (Other)
  Sender: FDA-Public Use
  Company Number: None

PATIENT
  Age: 82 Year
  Sex: Male
  Weight: 80 kg

DRUGS (11)
  1. PIPERACILLIN SODIUM\TAZOBACTAM SODIUM [Suspect]
     Active Substance: PIPERACILLIN SODIUM\TAZOBACTAM SODIUM
     Indication: Pneumonia
     Dosage: 1-1-1?FORM OF ADMIN: POWDER FOR SOLUTION FOR INFUSION?ROUTE OF ADMIN: INTRAVENOUS
     Dates: end: 20231218
  2. MEROPENEM [Suspect]
     Active Substance: MEROPENEM
     Indication: Pneumonia
     Dosage: 1-1-1?DRUG DURATION: 9 DAYS?FORM: POWDER FOR SOLUTION FOR INFUSION ?ROUTE: INTRAVENOUS
     Dates: end: 20231227
  3. Mono Embolex 3000IE [Concomitant]
     Indication: Product used for unknown indication
     Dosage: 0-0-1 PREFILLED SYRINGE ?SUBCUTANEOUS
     Dates: start: 20231213, end: 20240103
  4. ACTRAPID [Concomitant]
     Active Substance: INSULIN HUMAN
     Indication: Product used for unknown indication
  5. Novaminsulfon 500mg [Concomitant]
     Indication: Product used for unknown indication
     Dosage: 2-2-2-2?TABLET?ORAL
     Dates: start: 20231213, end: 20231225
  6. DONEPEZIL [Concomitant]
     Active Substance: DONEPEZIL
     Indication: Product used for unknown indication
     Dosage: 0-0-1-0?TABLET?ORAL
     Dates: start: 20231213, end: 20240103
  7. Propofol Perfusor [Concomitant]
     Indication: Product used for unknown indication
     Dates: start: 20231213, end: 20231225
  8. Natriumpicosulfat 7,5mg/ml [Concomitant]
     Indication: Product used for unknown indication
     Dosage: AS NEEDED ?ORAL
     Dates: start: 20231213, end: 20240103
  9. Bisacodyl 10mg [Concomitant]
     Indication: Product used for unknown indication
     Dosage: 1-0-0 BAG?RECTAL USE
     Dates: start: 20231213, end: 20240103
  10. POLYETHYLENE GLYCOLS [Concomitant]
     Active Substance: POLYETHYLENE GLYCOLS
     Indication: Product used for unknown indication
     Dosage: BAG?ORAL USE
     Dates: start: 20231213, end: 20240103
  11. Berlinsulin 30/70 Pen [Concomitant]
     Indication: Product used for unknown indication
     Dosage: 20-0-24 IE?SUBCUTANEOUS
     Dates: start: 20231213, end: 20240103

REACTIONS (2)
  - Hypokalaemia [Recovered/Resolved]
  - Hypernatraemia [Recovered/Resolved]

NARRATIVE: CASE EVENT DATE: 20231201
